FAERS Safety Report 16662831 (Version 1)
Quarter: 2019Q3

REPORT INFORMATION
  Report Type: Report from Study
  Country: US (occurrence: US)
  Receive Date: 20190802
  Receipt Date: 20190802
  Transmission Date: 20191004
  Serious: No
  Sender: FDA-Public Use
  Company Number: US-EXELIXIS-CABO-18017890

PATIENT
  Sex: Female

DRUGS (12)
  1. ASPIRIN. [Concomitant]
     Active Substance: ASPIRIN
  2. INVOKAMET [Concomitant]
     Active Substance: CANAGLIFLOZIN\METFORMIN HYDROCHLORIDE
  3. CABOMETYX [Suspect]
     Active Substance: CABOZANTINIB S-MALATE
     Indication: RENAL CANCER
     Dosage: 40 MG, QD
     Route: 048
     Dates: start: 20180306
  4. LISINOPRIL. [Concomitant]
     Active Substance: LISINOPRIL
  5. STOOL SOFTENER (DOCUSATE) [Concomitant]
     Active Substance: DOCUSATE
  6. RANITIDINE. [Concomitant]
     Active Substance: RANITIDINE
  7. CALTRATE [Concomitant]
     Active Substance: CALCIUM CARBONATE
  8. ATORVASTATIN CALCIUM. [Concomitant]
     Active Substance: ATORVASTATIN CALCIUM
  9. PROCHLORPERAZINE MALEATE. [Concomitant]
     Active Substance: PROCHLORPERAZINE MALEATE
  10. VITAMIN B12 [Concomitant]
     Active Substance: CYANOCOBALAMIN
  11. AMLODIPINE [Concomitant]
     Active Substance: AMLODIPINE BESYLATE
  12. FERREX [Concomitant]
     Active Substance: FERRIC POLYSACCHARIDE COMPLEX

REACTIONS (5)
  - Abdominal pain [Unknown]
  - Fatigue [Unknown]
  - Blood urine present [Unknown]
  - Diarrhoea [Unknown]
  - Tremor [Unknown]

NARRATIVE: CASE EVENT DATE: 2018
